FAERS Safety Report 21379037 (Version 2)
Quarter: 2022Q4

REPORT INFORMATION
  Report Type: Spontaneous
  Country: US (occurrence: None)
  Receive Date: 20220927
  Receipt Date: 20221005
  Transmission Date: 20230113
  Serious: No
  Sender: FDA-Public Use
  Company Number: 2022A306534

PATIENT
  Age: 77 Year
  Sex: Male
  Weight: 86.2 kg

DRUGS (1)
  1. SYMBICORT [Suspect]
     Active Substance: BUDESONIDE\FORMOTEROL FUMARATE DIHYDRATE
     Indication: Asthma
     Dosage: 2 DOSES OF 80/4.5UG TWO TIMES A DAY
     Route: 055
     Dates: start: 201909

REACTIONS (4)
  - Respiratory tract congestion [Unknown]
  - Cough [Unknown]
  - Incorrect dose administered by device [Unknown]
  - Product use issue [Unknown]

NARRATIVE: CASE EVENT DATE: 20220101
